FAERS Safety Report 16198442 (Version 1)
Quarter: 2019Q2

REPORT INFORMATION
  Report Type: Spontaneous
  Country: US (occurrence: US)
  Receive Date: 20190415
  Receipt Date: 20190415
  Transmission Date: 20190711
  Serious: No
  Sender: FDA-Public Use
  Company Number: US-LANNETT COMPANY, INC.-US-2018LAN001060

PATIENT

DRUGS (1)
  1. HYDROCORTISONE CREAM 2.5% [Suspect]
     Active Substance: HYDROCORTISONE
     Indication: PRURITUS
     Dosage: UNK

REACTIONS (1)
  - Drug ineffective [Unknown]
